FAERS Safety Report 5300065-9 (Version None)
Quarter: 2007Q2

REPORT INFORMATION
  Report Type: 
  Country: None (occurrence: None)
  Receive Date: 20070410
  Receipt Date: 20070404
  Transmission Date: 20071010
  Serious: Yes (Hospitalization)
  Sender: FDA-Public Use
  Company Number: A0627733A

PATIENT
  Age: 56 Year
  Sex: Female
  Weight: 57.879 kg

DRUGS (1)
  1. LAPATINIB TABLET (LAPATINIB) [Suspect]
     Indication: METASTASES TO CENTRAL NERVOUS SYSTEM
     Dosage: 750 MG/TWICE PER DAY/ORAL
     Route: 048
     Dates: start: 20060108

REACTIONS (5)
  - ANOREXIA [None]
  - C-REACTIVE PROTEIN INCREASED [None]
  - DIARRHOEA [None]
  - DYSPEPSIA [None]
  - VOMITING [None]
